FAERS Safety Report 4748550-2 (Version None)
Quarter: 2005Q3

REPORT INFORMATION
  Report Type: 
  Country: None (occurrence: None)
  Receive Date: 20050817
  Receipt Date: 20050817
  Transmission Date: 20060218
  Serious: Yes (Hospitalization)
  Sender: FDA-Public Use
  Company Number: None

PATIENT
  Sex: Male
  Weight: 81.8 kg

DRUGS (5)
  1. RITUXAN + CHOP CHEMOTHERAPY [Suspect]
     Indication: NON-HODGKIN'S LYMPHOMA
     Dosage: STANDARD DOSING
     Dates: start: 20050804
  2. CITOXAN [Suspect]
     Indication: NON-HODGKIN'S LYMPHOMA
  3. DOXORUBICIN HCL [Suspect]
     Indication: NON-HODGKIN'S LYMPHOMA
  4. ONCOVIN [Suspect]
     Indication: NON-HODGKIN'S LYMPHOMA
  5. PREDNISONE [Suspect]
     Indication: NON-HODGKIN'S LYMPHOMA

REACTIONS (6)
  - CATHETER SITE DISCHARGE [None]
  - CATHETER SITE ERYTHEMA [None]
  - FEBRILE NEUTROPENIA [None]
  - HYPOTENSION [None]
  - NAUSEA [None]
  - VOMITING [None]
